FAERS Safety Report 24803458 (Version 2)
Quarter: 2025Q1

REPORT INFORMATION
  Report Type: Spontaneous
  Country: US (occurrence: US)
  Receive Date: 20250103
  Receipt Date: 20250310
  Transmission Date: 20250408
  Serious: Yes (Other)
  Sender: APOTEX
  Company Number: US-APOTEX-2024AP019892

PATIENT
  Age: 71 Year
  Sex: Male

DRUGS (6)
  1. PEMETREXED [Suspect]
     Active Substance: PEMETREXED
     Indication: Thyroid cancer metastatic
     Route: 042
  2. PEMETREXED [Suspect]
     Active Substance: PEMETREXED
     Indication: Papillary thyroid cancer
  3. PEMETREXED [Suspect]
     Active Substance: PEMETREXED
     Indication: Salvage therapy
  4. CARBOPLATIN [Suspect]
     Active Substance: CARBOPLATIN
     Indication: Thyroid cancer metastatic
     Route: 042
  5. CARBOPLATIN [Suspect]
     Active Substance: CARBOPLATIN
     Indication: Papillary thyroid cancer
  6. CARBOPLATIN [Suspect]
     Active Substance: CARBOPLATIN
     Indication: Salvage therapy

REACTIONS (5)
  - Leukopenia [Unknown]
  - Myelosuppression [Unknown]
  - Toxicity to various agents [Unknown]
  - Off label use [Unknown]
  - Anaemia [Unknown]
